FAERS Safety Report 8268793-3 (Version None)
Quarter: 2012Q2

REPORT INFORMATION
  Report Type: 
  Country: None (occurrence: None)
  Receive Date: 20120409
  Receipt Date: 20120409
  Transmission Date: 20120825
  Serious: Yes (Other)
  Sender: FDA-Public Use
  Company Number: None

PATIENT
  Age: 5 Month
  Sex: Female
  Weight: 6 kg

DRUGS (1)
  1. GAMUNEX [Suspect]
     Indication: COMBINED IMMUNODEFICIENCY
     Dosage: 5GM
     Route: 042
     Dates: start: 20120320, end: 20120320

REACTIONS (1)
  - HAEMOLYTIC ANAEMIA [None]
